FAERS Safety Report 6439826-1 (Version None)
Quarter: 2009Q4

REPORT INFORMATION
  Report Type: 
  Country: None (occurrence: None)
  Receive Date: 20091113
  Receipt Date: 20091106
  Transmission Date: 20100525
  Serious: Yes (Death, Hospitalization)
  Sender: FDA-Public Use
  Company Number: ES-AMGEN-UK366875

PATIENT
  Sex: Female

DRUGS (2)
  1. ROMIPLOSTIM [Suspect]
     Indication: IDIOPATHIC THROMBOCYTOPENIC PURPURA
     Route: 058
     Dates: start: 20090325, end: 20090924
  2. DIOVAN HCT [Concomitant]
     Route: 048

REACTIONS (3)
  - INTESTINAL ISCHAEMIA [None]
  - PORTAL VEIN THROMBOSIS [None]
  - SEPTIC SHOCK [None]
